FAERS Safety Report 8687884 (Version 6)
Quarter: 2013Q1

REPORT INFORMATION
  Report Type: Report from Study
  Country: JP (occurrence: JP)
  Receive Date: 20120727
  Receipt Date: 20130219
  Transmission Date: 20140127
  Serious: Yes (Death, Hospitalization, Other)
  Sender: FDA-Public Use
  Company Number: JP-ABBOTT-12P-087-0960322-00

PATIENT
  Age: 76 Year
  Sex: Male
  Weight: 75 kg

DRUGS (7)
  1. HUMIRA [Suspect]
     Indication: RHEUMATOID ARTHRITIS
     Route: 058
     Dates: start: 20100621, end: 20111216
  2. RHEUMATREX [Suspect]
     Indication: RHEUMATOID ARTHRITIS
     Dosage: 2 CAPSULES WEEKLY
     Route: 048
     Dates: start: 20100802, end: 20111216
  3. PLAVIX [Suspect]
     Indication: CEREBRAL INFARCTION
     Route: 048
     Dates: start: 20101206, end: 20120117
  4. RANITIDINE HYDROCHLORIDE [Concomitant]
     Indication: PRODUCT USED FOR UNKNOWN INDICATION
     Dosage: 150 MG DAILY
     Dates: start: 20080201, end: 20120121
  5. BUDESONIDE/FORMOTEROL FUMARATE HYDRATE [Concomitant]
     Indication: PRODUCT USED FOR UNKNOWN INDICATION
     Dosage: TWO SPRAYS/DAY
     Dates: start: 20110704, end: 20120121
  6. SPHERICAL ABSORBENT COAL [Concomitant]
     Indication: PRODUCT USED FOR UNKNOWN INDICATION
     Dosage: 6 GRAM DAILY
     Dates: start: 20111007, end: 20120121
  7. METHOTREXATE [Concomitant]

REACTIONS (7)
  - Small intestinal haemorrhage [Fatal]
  - Interstitial lung disease [Recovering/Resolving]
  - Duodenal ulcer haemorrhage [Fatal]
  - Haematemesis [Unknown]
  - Obstructive airways disorder [Unknown]
  - Respiratory arrest [Unknown]
  - Renal failure chronic [Unknown]
